FAERS Safety Report 12920905 (Version 1)
Quarter: 2016Q4

REPORT INFORMATION
  Report Type: Spontaneous
  Country: FR (occurrence: FR)
  Receive Date: 20161107
  Receipt Date: 20161107
  Transmission Date: 20170207
  Serious: Yes (Other)
  Sender: FDA-Public Use
  Company Number: FR-JNJFOC-20161101860

PATIENT
  Age: 55 Year
  Sex: Male

DRUGS (1)
  1. XARELTO [Suspect]
     Active Substance: RIVAROXABAN
     Indication: DEEP VEIN THROMBOSIS
     Route: 048
     Dates: start: 201606, end: 201610

REACTIONS (8)
  - Hyperhidrosis [Recovered/Resolved]
  - Blood glucose decreased [Unknown]
  - Hyperthermia [Recovered/Resolved]
  - Pyrexia [Recovered/Resolved]
  - Blood glucose increased [Unknown]
  - Blood urine present [Unknown]
  - Asthenia [Recovered/Resolved]
  - Pyrexia [Recovered/Resolved]

NARRATIVE: CASE EVENT DATE: 2016
